FAERS Safety Report 12917331 (Version 3)
Quarter: 2016Q4

REPORT INFORMATION
  Report Type: Spontaneous
  Country: BR (occurrence: BR)
  Receive Date: 20161107
  Receipt Date: 20161130
  Transmission Date: 20170207
  Serious: Yes (Other)
  Sender: FDA-Public Use
  Company Number: BR-ABBVIE-16P-020-1773929-00

PATIENT
  Age: 9 Year
  Sex: Male

DRUGS (4)
  1. VALPROATE SODIUM. [Suspect]
     Active Substance: VALPROATE SODIUM
     Indication: AUTISM
     Route: 048
  2. ARISTAB (ARIPIPRAZOLE) [Concomitant]
     Indication: PRODUCT USED FOR UNKNOWN INDICATION
  3. VALPROATE SODIUM. [Suspect]
     Active Substance: VALPROATE SODIUM
     Route: 048
  4. RISPERIDONE. [Concomitant]
     Active Substance: RISPERIDONE
     Indication: PRODUCT USED FOR UNKNOWN INDICATION

REACTIONS (6)
  - Agitation [Recovering/Resolving]
  - Periodic limb movement disorder [Recovering/Resolving]
  - Seizure [Recovering/Resolving]
  - Drug ineffective [Unknown]
  - Product quality issue [Unknown]
  - Bulimia nervosa [Recovering/Resolving]
